FAERS Safety Report 7945607-X (Version None)
Quarter: 2011Q4

REPORT INFORMATION
  Report Type: 
  Country: None (occurrence: None)
  Receive Date: 20111129
  Receipt Date: 20111121
  Transmission Date: 20120403
  Serious: Yes (Other)
  Sender: FDA-Public Use
  Company Number: US-JNJFOC-20111110950

PATIENT
  Sex: Female

DRUGS (1)
  1. NICORETTE [Suspect]
     Indication: PRODUCT USED FOR UNKNOWN INDICATION
     Dosage: FOR 17.5 YEARS
     Route: 048

REACTIONS (3)
  - INTENTIONAL DRUG MISUSE [None]
  - MALAISE [None]
  - NEOPLASM MALIGNANT [None]
